FAERS Safety Report 5249896-4 (Version None)
Quarter: 2007Q1

REPORT INFORMATION
  Report Type: 
  Country: None (occurrence: None)
  Receive Date: 20070228
  Receipt Date: 20060113
  Transmission Date: 20070707
  Serious: No
  Sender: FDA-Public Use
  Company Number: US-GLAXOSMITHKLINE-A0496753A

PATIENT
  Age: 57 Year
  Sex: Male

DRUGS (2)
  1. LAMICTAL [Suspect]
     Dosage: 400MG TWICE PER DAY
     Route: 048
  2. CLORAZEPATE [Concomitant]
     Dosage: 7.5MG AS REQUIRED

REACTIONS (4)
  - ACCIDENTAL OVERDOSE [None]
  - ARTHRITIS [None]
  - BALANCE DISORDER [None]
  - HEADACHE [None]
